FAERS Safety Report 5779930-4 (Version None)
Quarter: 2008Q2

REPORT INFORMATION
  Report Type: 
  Country: None (occurrence: None)
  Receive Date: 20080616
  Receipt Date: 20080317
  Transmission Date: 20081010
  Serious: Yes (Hospitalization)
  Sender: FDA-Public Use
  Company Number: 08-ADE-SE-0002-ACT

PATIENT
  Sex: Male
  Weight: 86.1834 kg

DRUGS (1)
  1. H P ACTHAR [Suspect]
     Indication: MULTIPLE SCLEROSIS
     Dosage: 40 U TWICE WEEKLY
     Dates: start: 20071201, end: 20080301

REACTIONS (3)
  - MULTIPLE SCLEROSIS RELAPSE [None]
  - PNEUMONIA [None]
  - WHEEZING [None]
